FAERS Safety Report 9476559 (Version 1)
Quarter: 2013Q3

REPORT INFORMATION
  Report Type: Spontaneous
  Country: US (occurrence: None)
  Receive Date: 20130823
  Receipt Date: 20130823
  Transmission Date: 20140515
  Serious: No
  Sender: FDA-Public Use
  Company Number: None

PATIENT
  Age: 92 Year
  Sex: Female

DRUGS (1)
  1. CEFADROXIL [Suspect]
     Indication: CELLULITIS
     Route: 048
     Dates: start: 20130812, end: 20130817

REACTIONS (9)
  - Malaise [None]
  - Fatigue [None]
  - Chills [None]
  - Apathy [None]
  - Arthropathy [None]
  - Gait disturbance [None]
  - Local swelling [None]
  - Feeling hot [None]
  - Sensory disturbance [None]
